FAERS Safety Report 4706105-X (Version None)
Quarter: 2005Q2

REPORT INFORMATION
  Report Type: 
  Country: None (occurrence: None)
  Receive Date: 20050629
  Receipt Date: 20050622
  Transmission Date: 20051028
  Serious: Yes (Other)
  Sender: FDA-Public Use
  Company Number: 2005092341

PATIENT
  Age: 31 Year
  Sex: Male

DRUGS (2)
  1. NEURONTIN [Suspect]
     Indication: DEPRESSION
  2. CARBON MONOXIDE (CARBON MONOXIDE) [Suspect]
     Indication: SUICIDE ATTEMPT
     Dosage: INHALATION
     Route: 055
     Dates: start: 20020701

REACTIONS (3)
  - CARBON MONOXIDE POISONING [None]
  - DRUG INEFFECTIVE [None]
  - SUICIDE ATTEMPT [None]
